FAERS Safety Report 14223292 (Version 2)
Quarter: 2018Q1

REPORT INFORMATION
  Report Type: Report from Study
  Country: IN (occurrence: IN)
  Receive Date: 20171125
  Receipt Date: 20180125
  Transmission Date: 20180508
  Serious: Yes (Other)
  Sender: FDA-Public Use
  Company Number: IN-ROCHE-2017476

PATIENT
  Age: 63 Year
  Sex: Female

DRUGS (1)
  1. AVASTIN [Suspect]
     Active Substance: BEVACIZUMAB
     Indication: COLORECTAL CANCER METASTATIC
     Route: 042
     Dates: start: 20161105

REACTIONS (5)
  - Impaired healing [Unknown]
  - Cellulitis [Unknown]
  - Toxicity to various agents [Unknown]
  - Wound [Recovered/Resolved]
  - Skin ulcer [Unknown]
